FAERS Safety Report 8050007-0 (Version None)
Quarter: 2012Q1

REPORT INFORMATION
  Report Type: 
  Country: None (occurrence: None)
  Receive Date: 20120117
  Receipt Date: 20120105
  Transmission Date: 20120608
  Serious: Yes (Other)
  Sender: FDA-Public Use
  Company Number: GB-SANOFI-AVENTIS-2011SA070755

PATIENT
  Age: 89 Year
  Sex: Female

DRUGS (8)
  1. PREDNISOLONE [Concomitant]
     Route: 065
  2. THYROXIN [Concomitant]
     Route: 065
  3. ALENDRONATE SODIUM [Concomitant]
     Route: 065
  4. FYBOGEL [Concomitant]
     Route: 065
  5. ADCAL [Concomitant]
     Route: 065
  6. ASPIRIN [Concomitant]
     Route: 065
  7. DIGOXIN [Concomitant]
     Route: 065
  8. DRONEDARONE HCL [Suspect]
     Route: 048
     Dates: start: 20110401, end: 20111017

REACTIONS (4)
  - HEPATIC ENZYME INCREASED [None]
  - DECREASED APPETITE [None]
  - NAUSEA [None]
  - WEIGHT DECREASED [None]
